FAERS Safety Report 7012476-4 (Version None)
Quarter: 2010Q3

REPORT INFORMATION
  Report Type: 
  Country: None (occurrence: None)
  Receive Date: 20100924
  Receipt Date: 20100917
  Transmission Date: 20110219
  Serious: Yes (Hospitalization)
  Sender: FDA-Public Use
  Company Number: US-BRISTOL-MYERS SQUIBB COMPANY-15298854

PATIENT
  Age: 46 Year
  Sex: Male

DRUGS (9)
  1. ARIPIPRAZOLE [Suspect]
     Indication: SCHIZOPHRENIA
     Dosage: APIPRAZOLE IM DEPOT REGIMEN 1(05AUG10-UNK); INCREASED TO 25MG/D(16SEP10-UNK)
     Route: 048
     Dates: start: 20100805
  2. LORAZEPAM [Concomitant]
  3. BENZTROPINE MESYLATE [Concomitant]
  4. AMLODIPINE [Concomitant]
     Dates: start: 20100502
  5. BENAZEPRIL HYDROCHLORIDE [Concomitant]
     Dates: start: 20100502
  6. SIMVASTATIN [Concomitant]
     Dates: start: 20090617
  7. GLYBURIDE [Concomitant]
     Dates: start: 20091027
  8. METFORMIN [Concomitant]
     Dates: start: 20091027
  9. PIOGLITAZONE HCL [Concomitant]
     Dates: start: 20091027

REACTIONS (1)
  - HALLUCINATION, AUDITORY [None]
